FAERS Safety Report 22056165 (Version 1)
Quarter: 2023Q1

REPORT INFORMATION
  Report Type: Spontaneous
  Country: US (occurrence: US)
  Receive Date: 20230302
  Receipt Date: 20230302
  Transmission Date: 20230417
  Serious: No
  Sender: FDA-Public Use
  Company Number: US-BRAINTREE LABORATORIES, INC.-2022BTE00978

PATIENT
  Age: 67 Year
  Sex: Female

DRUGS (13)
  1. SUTAB [Suspect]
     Active Substance: MAGNESIUM SULFATE\POTASSIUM CHLORIDE\SODIUM SULFATE
     Indication: Colonoscopy
     Dosage: 2 X 12 TABLETS, 1X
     Route: 048
     Dates: start: 20221009, end: 20221009
  2. SYNTHROID [Concomitant]
     Active Substance: LEVOTHYROXINE SODIUM
     Dosage: 75 ?G, 1X/DAY
  3. DIOVAN [Concomitant]
     Active Substance: VALSARTAN
     Dosage: 80 MG, 1X/DAY
  4. TRIAMTERENE [Concomitant]
     Active Substance: TRIAMTERENE
     Dosage: 1 DOSAGE UNITS, 1X/DAY
  5. METFORMIN [Concomitant]
     Active Substance: METFORMIN HYDROCHLORIDE
     Dosage: 500 MG, 4X/DAY
  6. CRESTOR [Concomitant]
     Active Substance: ROSUVASTATIN CALCIUM
     Dosage: 5 MG, 4X/WEEK
  7. ASPIRIN [Concomitant]
     Active Substance: ASPIRIN
     Dosage: UNK, 1X/DAY
  8. VITAMIN C [Concomitant]
     Active Substance: ASCORBIC ACID
  9. PROBIOTICS NOS [Concomitant]
     Active Substance: PROBIOTICS NOS
  10. ZINC [Concomitant]
     Active Substance: ZINC
  11. CALCIUM [Concomitant]
     Active Substance: CALCIUM
  12. DIETARY SUPPLEMENT [Concomitant]
     Active Substance: DIETARY SUPPLEMENT
  13. ELDERBERRY [SAMBUCUS NIGRA FRUIT] [Concomitant]

REACTIONS (4)
  - Tachycardia [Not Recovered/Not Resolved]
  - Insomnia [Not Recovered/Not Resolved]
  - Feeling abnormal [Not Recovered/Not Resolved]
  - Dyspnoea [Not Recovered/Not Resolved]

NARRATIVE: CASE EVENT DATE: 20221010
